FAERS Safety Report 5288302-0 (Version None)
Quarter: 2007Q1

REPORT INFORMATION
  Report Type: 
  Country: None (occurrence: None)
  Receive Date: 20070116
  Receipt Date: 20060405
  Transmission Date: 20070707
  Serious: No
  Sender: FDA-Public Use
  Company Number: FEI2006-0372

PATIENT
  Age: 40 Year
  Sex: Female
  Weight: 73.9363 kg

DRUGS (1)
  1. INTRAUTERINE COPPER CONTRACEPTIVE [Suspect]
     Indication: CONTRACEPTION
     Dosage: INTRA-UTERINE
     Route: 015
     Dates: start: 19920101, end: 20020101

REACTIONS (7)
  - INTRA-UTERINE CONTRACEPTIVE DEVICE EXPELLED [None]
  - IUCD COMPLICATION [None]
  - IUD MIGRATION [None]
  - TRICHOMONIASIS [None]
  - URINE ANALYSIS ABNORMAL [None]
  - UTERINE CERVICAL EROSION [None]
  - VAGINAL INFECTION [None]
